FAERS Safety Report 24897643 (Version 2)
Quarter: 2025Q1

REPORT INFORMATION
  Report Type: Spontaneous
  Country: US (occurrence: US)
  Receive Date: 20250129
  Receipt Date: 20250228
  Transmission Date: 20250409
  Serious: No
  Sender: AUROBINDO
  Company Number: US-AUROBINDO-AUR-APL-2025-003677

PATIENT
  Age: 2 Year
  Sex: Female

DRUGS (3)
  1. PREDNISOLONE [Suspect]
     Active Substance: PREDNISOLONE
     Indication: Vascular malformation
     Route: 048
  2. SIROLIMUS [Concomitant]
     Active Substance: SIROLIMUS
     Indication: Vascular malformation
     Route: 065
  3. ALPELISIB [Concomitant]
     Active Substance: ALPELISIB
     Indication: Vascular malformation
     Route: 065

REACTIONS (2)
  - Behaviour disorder [Recovered/Resolved]
  - Cushingoid [Recovered/Resolved]
